FAERS Safety Report 8457939-X (Version None)
Quarter: 2012Q2

REPORT INFORMATION
  Report Type: 
  Country: None (occurrence: None)
  Receive Date: 20120622
  Receipt Date: 20120613
  Transmission Date: 20120825
  Serious: Yes (Other)
  Sender: FDA-Public Use
  Company Number: US-JNJFOC-20120603360

PATIENT

DRUGS (11)
  1. RITUXIMAB [Suspect]
     Dosage: BEFORE CHEMOTHERAPY
     Route: 065
  2. CYTARABINE [Suspect]
     Indication: MANTLE CELL LYMPHOMA
     Dosage: 4 CYCLE OF INDUCTION THERAPY
     Route: 065
  3. RITUXIMAB [Suspect]
     Indication: MANTLE CELL LYMPHOMA
     Dosage: AGAIN 7 DAYS LATER
     Route: 065
  4. CYCLOPHOSPHAMIDE [Suspect]
     Indication: MANTLE CELL LYMPHOMA
     Dosage: 4 CYCLE OF INDUCTION THERAPY
     Route: 065
  5. VINCRISTINE [Suspect]
     Indication: MANTLE CELL LYMPHOMA
     Dosage: 4 CYCLE OF INDUCTION THERAPY
     Route: 065
  6. PREDNISONE TAB [Suspect]
     Indication: MANTLE CELL LYMPHOMA
     Dosage: 4 CYCLE OF INDUCTION THERAPY
     Route: 065
  7. DOXORUBICIN HCL [Suspect]
     Indication: MANTLE CELL LYMPHOMA
     Dosage: 4 CYCLE OF INDUCTION THERAPY
     Route: 042
  8. METHOTREXATE [Suspect]
     Indication: MANTLE CELL LYMPHOMA
     Dosage: 4 CYCLE OF INDUCTION THERAPY
     Route: 065
  9. RITUXIMAB [Suspect]
     Dosage: ON DAYS PLUS 1 AND PLUS 8 AFTER ASCT
     Route: 065
  10. RITUXIMAB [Suspect]
     Dosage: 4 CYCLE OF INDUCTION THERAPY
     Route: 065
  11. DEXAMETHASONE [Suspect]
     Indication: MANTLE CELL LYMPHOMA
     Dosage: 4 CYCLE OF INDUCTION THERAPY
     Route: 065

REACTIONS (2)
  - MANTLE CELL LYMPHOMA [None]
  - MYELODYSPLASTIC SYNDROME [None]
